FAERS Safety Report 23956868 (Version 1)
Quarter: 2024Q2

REPORT INFORMATION
  Report Type: Spontaneous
  Country: FR (occurrence: FR)
  Receive Date: 20240610
  Receipt Date: 20240610
  Transmission Date: 20240716
  Serious: Yes (Other)
  Sender: FDA-Public Use
  Company Number: FR-ALNYLAM PHARMACEUTICALS, INC.-ALN-2024-003005

PATIENT

DRUGS (8)
  1. AMVUTTRA [Suspect]
     Active Substance: VUTRISIRAN
     Indication: Product used for unknown indication
     Dosage: 25 MILLIGRAM
     Route: 058
     Dates: start: 20240426, end: 20240426
  2. LIPTRUZET [Concomitant]
     Active Substance: ATORVASTATIN CALCIUM\EZETIMIBE
     Indication: Product used for unknown indication
     Dosage: UNK
     Route: 065
  3. LYRICA [Concomitant]
     Active Substance: PREGABALIN
     Indication: Product used for unknown indication
     Dosage: UNK
     Route: 065
  4. FUROSEMIDE [Concomitant]
     Active Substance: FUROSEMIDE
     Indication: Product used for unknown indication
     Dosage: UNK
     Route: 065
  5. RIVAROXABAN [Concomitant]
     Active Substance: RIVAROXABAN
     Indication: Product used for unknown indication
     Dosage: UNK
     Route: 065
  6. NEBIVOLOL [Concomitant]
     Active Substance: NEBIVOLOL
     Indication: Product used for unknown indication
     Dosage: UNK
     Route: 065
  7. VITAMIN A [Concomitant]
     Active Substance: VITAMIN A
     Indication: Product used for unknown indication
     Dosage: 25 DROPS
     Route: 065
  8. PANTOPRAZOLE [Concomitant]
     Active Substance: PANTOPRAZOLE
     Indication: Product used for unknown indication
     Dosage: UNK
     Route: 065

REACTIONS (4)
  - Paranasal sinus discomfort [Recovered/Resolved]
  - Nausea [Recovered/Resolved]
  - Arthralgia [Recovering/Resolving]
  - Ataxia [Unknown]

NARRATIVE: CASE EVENT DATE: 20240427
